FAERS Safety Report 18967138 (Version 1)
Quarter: 2021Q1

REPORT INFORMATION
  Report Type: Spontaneous
  Country: FR (occurrence: FR)
  Receive Date: 20210304
  Receipt Date: 20210304
  Transmission Date: 20210420
  Serious: Yes (Hospitalization)
  Sender: FDA-Public Use
  Company Number: FR-TEVA-2021-FR-1885129

PATIENT
  Age: 2 Year
  Sex: Female
  Weight: 9 kg

DRUGS (1)
  1. ALPRAZOLAM TEVA 0,50 MG, COMPRIME SECABLE [Suspect]
     Active Substance: ALPRAZOLAM
     Indication: PRODUCT USED FOR UNKNOWN INDICATION
     Dosage: 5 DOSAGE FORMS
     Route: 048
     Dates: start: 20200614, end: 20200614

REACTIONS (3)
  - Balance disorder [Not Recovered/Not Resolved]
  - Gait disturbance [Not Recovered/Not Resolved]
  - Accidental poisoning [Recovered/Resolved]

NARRATIVE: CASE EVENT DATE: 20200614
